FAERS Safety Report 25192650 (Version 1)
Quarter: 2025Q2

REPORT INFORMATION
  Report Type: Spontaneous
  Country: IT (occurrence: IT)
  Receive Date: 20250414
  Receipt Date: 20250414
  Transmission Date: 20250717
  Serious: Yes (Life-Threatening, Hospitalization)
  Sender: MYLAN
  Company Number: None

PATIENT
  Age: 65 Year
  Sex: Male
  Weight: 168 kg

DRUGS (28)
  1. METFORMIN [Suspect]
     Active Substance: METFORMIN HYDROCHLORIDE
     Indication: Type 2 diabetes mellitus
  2. METFORMIN [Suspect]
     Active Substance: METFORMIN HYDROCHLORIDE
     Route: 048
  3. METFORMIN [Suspect]
     Active Substance: METFORMIN HYDROCHLORIDE
     Route: 048
  4. METFORMIN [Suspect]
     Active Substance: METFORMIN HYDROCHLORIDE
  5. LASIX [Concomitant]
     Active Substance: FUROSEMIDE
     Indication: Hypertension
     Dosage: 1 DOSAGE FORM, QD (24 HOURS)
  6. LASIX [Concomitant]
     Active Substance: FUROSEMIDE
     Dosage: 1 DOSAGE FORM, QD (24 HOURS)
     Route: 048
  7. LASIX [Concomitant]
     Active Substance: FUROSEMIDE
     Dosage: 1 DOSAGE FORM, QD (24 HOURS)
     Route: 048
  8. LASIX [Concomitant]
     Active Substance: FUROSEMIDE
     Dosage: 1 DOSAGE FORM, QD (24 HOURS)
  9. CARDURA [Concomitant]
     Active Substance: DOXAZOSIN MESYLATE
     Indication: Hypertension
     Dosage: 1 DOSAGE FORM, QD (24 HOURS)
  10. CARDURA [Concomitant]
     Active Substance: DOXAZOSIN MESYLATE
     Dosage: 1 DOSAGE FORM, QD (24 HOURS)
     Route: 048
  11. CARDURA [Concomitant]
     Active Substance: DOXAZOSIN MESYLATE
     Dosage: 1 DOSAGE FORM, QD (24 HOURS)
     Route: 048
  12. CARDURA [Concomitant]
     Active Substance: DOXAZOSIN MESYLATE
     Dosage: 1 DOSAGE FORM, QD (24 HOURS)
  13. Luvion [Concomitant]
     Dosage: 1 DOSAGE FORM, QD (24 HOURS)
  14. Luvion [Concomitant]
     Dosage: 1 DOSAGE FORM, QD (24 HOURS)
     Route: 048
  15. Luvion [Concomitant]
     Dosage: 1 DOSAGE FORM, QD (24 HOURS)
     Route: 048
  16. Luvion [Concomitant]
     Dosage: 1 DOSAGE FORM, QD (24 HOURS)
  17. VIMPAT [Concomitant]
     Active Substance: LACOSAMIDE
     Dosage: 1 DOSAGE FORM, QD (24 HOURS)
  18. VIMPAT [Concomitant]
     Active Substance: LACOSAMIDE
     Dosage: 1 DOSAGE FORM, QD (24 HOURS)
     Route: 048
  19. VIMPAT [Concomitant]
     Active Substance: LACOSAMIDE
     Dosage: 1 DOSAGE FORM, QD (24 HOURS)
     Route: 048
  20. VIMPAT [Concomitant]
     Active Substance: LACOSAMIDE
     Dosage: 1 DOSAGE FORM, QD (24 HOURS)
  21. ASPIRIN [Concomitant]
     Active Substance: ASPIRIN
     Indication: Thrombosis prophylaxis
     Dosage: 100 MILLIGRAM, QD (24 HOURS)
  22. ASPIRIN [Concomitant]
     Active Substance: ASPIRIN
     Dosage: 100 MILLIGRAM, QD (24 HOURS)
     Route: 048
  23. ASPIRIN [Concomitant]
     Active Substance: ASPIRIN
     Dosage: 100 MILLIGRAM, QD (24 HOURS)
     Route: 048
  24. ASPIRIN [Concomitant]
     Active Substance: ASPIRIN
     Dosage: 100 MILLIGRAM, QD (24 HOURS)
  25. NEBIVOLOL HYDROCHLORIDE [Concomitant]
     Active Substance: NEBIVOLOL HYDROCHLORIDE
     Dosage: 1 DOSAGE FORM, QD (24HOURS)
  26. NEBIVOLOL HYDROCHLORIDE [Concomitant]
     Active Substance: NEBIVOLOL HYDROCHLORIDE
     Dosage: 1 DOSAGE FORM, QD (24HOURS)
     Route: 048
  27. NEBIVOLOL HYDROCHLORIDE [Concomitant]
     Active Substance: NEBIVOLOL HYDROCHLORIDE
     Dosage: 1 DOSAGE FORM, QD (24HOURS)
     Route: 048
  28. NEBIVOLOL HYDROCHLORIDE [Concomitant]
     Active Substance: NEBIVOLOL HYDROCHLORIDE
     Dosage: 1 DOSAGE FORM, QD (24HOURS)

REACTIONS (2)
  - Hyperkalaemia [Recovering/Resolving]
  - Lactic acidosis [Recovered/Resolved with Sequelae]

NARRATIVE: CASE EVENT DATE: 20250322
